FAERS Safety Report 5975200-X (Version None)
Quarter: 2008Q4

REPORT INFORMATION
  Report Type: 
  Country: None (occurrence: None)
  Receive Date: 20081202
  Receipt Date: 20080728
  Transmission Date: 20090506
  Serious: No
  Sender: FDA-Public Use
  Company Number: US-ABBOTT-08P-163-0465781-00

PATIENT
  Sex: Female

DRUGS (3)
  1. LUPRON DEPOT [Suspect]
     Indication: UTERINE LEIOMYOMA
     Route: 030
     Dates: start: 20060101, end: 20070101
  2. LUPRON DEPOT [Suspect]
     Route: 030
     Dates: start: 20080501
  3. IRON [Concomitant]
     Indication: ANAEMIA
     Route: 048

REACTIONS (1)
  - VAGINAL HAEMORRHAGE [None]
